FAERS Safety Report 23891717 (Version 2)
Quarter: 2024Q2

REPORT INFORMATION
  Report Type: Other
  Country: KR (occurrence: None)
  Receive Date: 20240524
  Receipt Date: 20240612
  Transmission Date: 20240716
  Serious: Yes (Other)
  Sender: FDA-Public Use
  Company Number: KR-ROCHE-3564333

PATIENT

DRUGS (2)
  1. ATEZOLIZUMAB [Suspect]
     Active Substance: ATEZOLIZUMAB
     Indication: Hepatocellular carcinoma
     Route: 065
  2. BEVACIZUMAB [Suspect]
     Active Substance: BEVACIZUMAB
     Indication: Hepatocellular carcinoma
     Route: 065

REACTIONS (11)
  - Hepatitis [Unknown]
  - Fatigue [Unknown]
  - Colitis [Unknown]
  - Pneumonitis [Unknown]
  - Cholangitis [Unknown]
  - Myositis [Unknown]
  - Nephritis [Unknown]
  - Rash [Unknown]
  - Anaphylactic shock [Unknown]
  - Asthma [Unknown]
  - Hepatic encephalopathy [Unknown]
